FAERS Safety Report 25234906 (Version 3)
Quarter: 2025Q3

REPORT INFORMATION
  Report Type: Spontaneous
  Country: US (occurrence: US)
  Receive Date: 20250424
  Receipt Date: 20250810
  Transmission Date: 20251021
  Serious: Yes (Other)
  Sender: ALEXION PHARMACEUTICALS
  Company Number: US-AstraZeneca-CH-00852020AP

PATIENT
  Age: 62 Year
  Sex: Male

DRUGS (2)
  1. BREZTRI [Suspect]
     Active Substance: BUDESONIDE\FORMOTEROL\GLYCOPYRROLATE
     Indication: Lung disorder
     Dosage: 160 MICROGRAM, QD
  2. BREZTRI [Suspect]
     Active Substance: BUDESONIDE\FORMOTEROL\GLYCOPYRROLATE

REACTIONS (10)
  - Pulmonary fibrosis [Unknown]
  - Dyspnoea [Unknown]
  - Disease progression [Unknown]
  - Wrong technique in product usage process [Unknown]
  - Oxygen saturation decreased [Unknown]
  - Memory impairment [Unknown]
  - COVID-19 [Unknown]
  - Drug dose omission by device [Unknown]
  - Product delivery mechanism issue [Unknown]
  - Incorrect dose administered by device [Unknown]

NARRATIVE: CASE EVENT DATE: 20241101
